FAERS Safety Report 7713364-8 (Version None)
Quarter: 2011Q3

REPORT INFORMATION
  Report Type: 
  Country: None (occurrence: None)
  Receive Date: 20110826
  Receipt Date: 20110815
  Transmission Date: 20111222
  Serious: Yes (Hospitalization, Other)
  Sender: FDA-Public Use
  Company Number: US-BAYER-2011-067144

PATIENT
  Age: 55 Year
  Sex: Female
  Weight: 65.76 kg

DRUGS (14)
  1. CALCIUM CARBONATE [Concomitant]
  2. PREVACID [Concomitant]
  3. ATENOLOL [Concomitant]
  4. VITAMIN B-12 [Concomitant]
  5. MAGNESIUM [Concomitant]
  6. NORTRIPTYLINE HCL [Concomitant]
  7. FLAXSEED OIL [Concomitant]
  8. ALEVE (CAPLET) [Suspect]
     Indication: HEADACHE
     Dosage: 1 TO 2 TABLETS ONCE
     Route: 048
     Dates: start: 20100101, end: 20100101
  9. EVENING PRIMROSE OIL [Concomitant]
  10. BORAGE OIL [Concomitant]
  11. POTASSIUM CHLORIDE [Concomitant]
  12. ZOCOR [Concomitant]
  13. BLACK COHOSH [Concomitant]
  14. MULTI-VITAMIN [Concomitant]

REACTIONS (3)
  - HYPERSENSITIVITY [None]
  - DYSPNOEA [None]
  - THROAT TIGHTNESS [None]
